FAERS Safety Report 6780322-X (Version None)
Quarter: 2010Q2

REPORT INFORMATION
  Report Type: 
  Country: None (occurrence: None)
  Receive Date: 20100618
  Receipt Date: 20100610
  Transmission Date: 20101027
  Serious: Yes (Hospitalization)
  Sender: FDA-Public Use
  Company Number: FR-ABBOTT-09P-056-0588910-00

PATIENT
  Sex: Male

DRUGS (6)
  1. HUMIRA [Suspect]
     Indication: RHEUMATOID ARTHRITIS
     Route: 058
     Dates: start: 20080313, end: 20090607
  2. IBUPROFEN TABLETS [Suspect]
     Indication: RHEUMATOID ARTHRITIS
     Dates: start: 20090602, end: 20090604
  3. APROVEL [Concomitant]
     Indication: HYPERTENSION
     Route: 048
     Dates: start: 20020101, end: 20090622
  4. METOJECT [Concomitant]
     Indication: RHEUMATOID ARTHRITIS
     Route: 058
     Dates: end: 20090602
  5. CORTANCYL [Concomitant]
     Indication: RHEUMATOID ARTHRITIS
     Route: 048
  6. CORTANCYL [Concomitant]
     Dates: start: 20090622, end: 20090820

REACTIONS (1)
  - CYTOLYTIC HEPATITIS [None]
